FAERS Safety Report 23105240 (Version 1)
Quarter: 2023Q4

REPORT INFORMATION
  Report Type: Spontaneous
  Country: US (occurrence: None)
  Receive Date: 20231023
  Receipt Date: 20231023
  Transmission Date: 20240109
  Serious: Yes (Hospitalization)
  Sender: FDA-Public Use
  Company Number: None

PATIENT
  Age: 79 Year
  Sex: Male
  Weight: 131 kg

DRUGS (1)
  1. DEXMEDETOMIDINE HYDROCHLORIDE IN SODIUM CHLORIDE [Suspect]
     Active Substance: DEXMEDETOMIDINE HYDROCHLORIDE
     Dosage: OTHER STRENGTH : 4MCG/ML/0.9%;100ML;?OTHER FREQUENCY : PER HOUR;?OTHER ROUTE : IV;?
     Route: 042
     Dates: start: 20230105, end: 20230106

REACTIONS (1)
  - Hypotension [None]

NARRATIVE: CASE EVENT DATE: 20230106
